FAERS Safety Report 5918837-6 (Version None)
Quarter: 2008Q3

REPORT INFORMATION
  Report Type: 
  Country: None (occurrence: None)
  Receive Date: 20080909
  Receipt Date: 20070827
  Transmission Date: 20090109
  Serious: Yes (Hospitalization)
  Sender: FDA-Public Use
  Company Number: 163-20785-07080429

PATIENT
  Age: 74 Year
  Sex: Male

DRUGS (1)
  1. THALOMID [Suspect]
     Indication: MULTIPLE MYELOMA
     Dosage: 100 MG, QD X28 DAYS, ORAL
     Route: 047
     Dates: start: 20070710

REACTIONS (2)
  - ANAEMIA [None]
  - RENAL IMPAIRMENT [None]
